FAERS Safety Report 10689167 (Version 2)
Quarter: 2015Q1

REPORT INFORMATION
  Report Type: Report from Study
  Country: JP (occurrence: JP)
  Receive Date: 20150105
  Receipt Date: 20150105
  Transmission Date: 20150720
  Serious: Yes (Death)
  Sender: FDA-Public Use
  Company Number: JP-009507513-1403JPN010232

PATIENT
  Age: 14 Year
  Sex: Female

DRUGS (16)
  1. ZOLINZA [Suspect]
     Active Substance: VORINOSTAT
     Indication: MYCOSIS FUNGOIDES
     Dosage: 300 MG, QD
     Route: 048
     Dates: start: 20130701, end: 20130716
  2. GLOVENIN [Concomitant]
     Indication: RESPIRATORY SYNCYTIAL VIRUS INFECTION
     Dosage: 5 G, QD
     Route: 042
     Dates: start: 20131025, end: 20131027
  3. VANCOMYCIN [Concomitant]
     Active Substance: VANCOMYCIN
     Indication: PROPHYLAXIS
     Dosage: 0.5 G, TID
     Route: 041
     Dates: start: 20130709, end: 20130714
  4. DEXART [Concomitant]
     Active Substance: DEXAMETHASONE SODIUM PHOSPHATE
     Indication: TRACHEAL STENOSIS
     Dosage: 6.6 MG, BID
     Route: 051
     Dates: start: 20131009
  5. FLUMARIN [Concomitant]
     Active Substance: FLOMOXEF SODIUM
     Indication: BRONCHITIS
     Dosage: 1 G, TID
     Route: 041
     Dates: start: 20131025, end: 20131028
  6. ZOLINZA [Suspect]
     Active Substance: VORINOSTAT
     Dosage: 400 MG, QD
     Route: 048
     Dates: start: 20130717, end: 20130729
  7. CARBENIN [Concomitant]
     Active Substance: BETAMIPRON\PANIPENEM
     Indication: INFECTION
     Dosage: 0.5 G, QID
     Route: 041
     Dates: end: 20130712
  8. ZOLINZA [Suspect]
     Active Substance: VORINOSTAT
     Dosage: 300 MG, QD
     Route: 048
     Dates: start: 20131007, end: 20131107
  9. POLYMYXIN B SULFATE. [Concomitant]
     Active Substance: POLYMYXIN B SULFATE
     Indication: PROPHYLAXIS
     Dosage: 50 THOUSAND-MILLION UNIT, TID
     Route: 048
  10. FAMOTIDINE D [Concomitant]
     Active Substance: FAMOTIDINE
     Indication: PROPHYLAXIS
     Dosage: 20 MG, BID
     Route: 048
     Dates: end: 20130718
  11. ZOLINZA [Suspect]
     Active Substance: VORINOSTAT
     Dosage: 300 MG, QD, 5 CONSECUTIVE DAYS TREATMENT AND 2 DAYS OFF
     Route: 048
     Dates: start: 20130730, end: 20130912
  12. NEUQUINON [Concomitant]
     Active Substance: UBIDECARENONE
     Indication: PROPHYLAXIS
     Dosage: 10 MG, TID
     Route: 048
  13. BAKTAR [Concomitant]
     Active Substance: SULFAMETHOXAZOLE\TRIMETHOPRIM
     Indication: ANTIFUNGAL PROPHYLAXIS
     Dosage: 1 DF, BID
     Route: 048
  14. FAMOTIDINE D [Concomitant]
     Active Substance: FAMOTIDINE
     Dosage: 20 MG, BID
     Route: 048
     Dates: start: 20131009
  15. TAKEPRON [Concomitant]
     Active Substance: LANSOPRAZOLE
     Indication: PROPHYLAXIS
     Dosage: 30 MG, QD
     Route: 048
     Dates: start: 20130718, end: 20130821
  16. MINOPEN [Concomitant]
     Active Substance: MINOCYCLINE HYDROCHLORIDE
     Indication: INFECTION
     Dosage: 100 MG, BID
     Route: 041
     Dates: end: 20130708

REACTIONS (6)
  - Fibrin D dimer increased [Not Recovered/Not Resolved]
  - Tracheal stenosis [Not Recovered/Not Resolved]
  - Platelet count decreased [Not Recovered/Not Resolved]
  - Platelet count decreased [Not Recovered/Not Resolved]
  - Mycosis fungoides [Fatal]
  - Fibrin degradation products increased [Not Recovered/Not Resolved]

NARRATIVE: CASE EVENT DATE: 20130721
